FAERS Safety Report 23241580 (Version 6)
Quarter: 2024Q4

REPORT INFORMATION
  Report Type: Report from Study
  Country: FR (occurrence: FR)
  Receive Date: 20231129
  Receipt Date: 20241118
  Transmission Date: 20250115
  Serious: Yes (Life-Threatening, Hospitalization, Other)
  Sender: MYLAN
  Company Number: FR-ROCHE-3446269

PATIENT
  Age: 33 Year
  Sex: Female
  Weight: 90 kg

DRUGS (23)
  1. METHYLPREDNISOLONE [Suspect]
     Active Substance: METHYLPREDNISOLONE
     Indication: Product used for unknown indication
     Dosage: 500 MILLIGRAM
     Route: 042
     Dates: start: 20230426, end: 20230426
  2. METHYLPREDNISOLONE [Suspect]
     Active Substance: METHYLPREDNISOLONE
     Dosage: 500 MILLIGRAM
     Route: 042
     Dates: start: 20230427, end: 20230427
  3. IBUPROFEN [Suspect]
     Active Substance: IBUPROFEN
     Indication: Headache
     Dosage: 1200 MILLIGRAM, QD (400 MG X3/D)
     Route: 048
     Dates: start: 20230930, end: 20231005
  4. IBUPROFEN [Suspect]
     Active Substance: IBUPROFEN
     Indication: Sinus pain
     Dosage: 400 MILLIGRAM 0.33 D
     Route: 048
     Dates: start: 20230930, end: 20231005
  5. MYCOPHENOLATE MOFETIL [Suspect]
     Active Substance: MYCOPHENOLATE MOFETIL
     Indication: Lupus nephritis
     Dosage: 2500 MILLIGRAM, QD (1000 MG IN THE MORNING, 500 MG AT NOON AND 1000 MG IN THE EVENING)
     Route: 048
     Dates: start: 20210408, end: 20231011
  6. MYCOPHENOLATE MOFETIL [Suspect]
     Active Substance: MYCOPHENOLATE MOFETIL
     Indication: Systemic lupus erythematosus
     Dosage: 2500 MILLIGRAM, QD (1G-500MG-1G)
     Route: 048
     Dates: start: 202103, end: 20231011
  7. BACTRIM [Suspect]
     Active Substance: SULFAMETHOXAZOLE\TRIMETHOPRIM
     Indication: Systemic lupus erythematosus
     Dosage: 1 DOSAGE FORM, QD (1 INTERNATIONAL UNIT, 1X/DAY)
     Route: 048
     Dates: start: 20230426, end: 20231011
  8. BACTRIM [Suspect]
     Active Substance: SULFAMETHOXAZOLE\TRIMETHOPRIM
     Indication: Neutropenia
  9. OBINUTUZUMAB [Suspect]
     Active Substance: OBINUTUZUMAB
     Indication: Lupus nephritis
     Dosage: 1000 MILLIGRAM (D1, THEN D15 16/05/2023)
     Route: 042
     Dates: start: 20230426, end: 20230516
  10. OBINUTUZUMAB [Suspect]
     Active Substance: OBINUTUZUMAB
     Indication: Systemic lupus erythematosus
  11. SOLU-MEDROL [Suspect]
     Active Substance: METHYLPREDNISOLONE SODIUM SUCCINATE
     Indication: Product used for unknown indication
     Dosage: 500 MILLIGRAM
     Route: 042
     Dates: start: 20230516, end: 20230516
  12. OBINUTUZUMAB [Suspect]
     Active Substance: OBINUTUZUMAB
     Indication: Systemic lupus erythematosus
     Dosage: 1000 MILLIGRAM, 1 TOTAL, CONCENTRATE FOR INFUSION
     Route: 042
     Dates: start: 20230426, end: 20230426
  13. OBINUTUZUMAB [Suspect]
     Active Substance: OBINUTUZUMAB
     Dosage: 1000 MILLIGRAM, 1 TOTAL (D1, THEN D15 16/05/2023)
     Route: 042
     Dates: start: 20230516, end: 20230516
  14. LOVENOX [Concomitant]
     Active Substance: ENOXAPARIN SODIUM
     Dosage: 40000 INTERNATIONAL UNIT
     Route: 065
     Dates: start: 20231013, end: 20231017
  15. Renitec [Concomitant]
     Dosage: 20 MILLIGRAM, QD (1 TABLET PER DAY IN THE MORNING)
     Route: 065
     Dates: start: 20210408
  16. PLAQUENIL [Concomitant]
     Active Substance: HYDROXYCHLOROQUINE SULFATE
     Dosage: 400 MILLIGRAM, QD (2 TABLETS IN THE EVENING)
     Route: 065
     Dates: start: 20200128
  17. LEVOFLOXACIN [Concomitant]
     Active Substance: LEVOFLOXACIN
     Indication: Sinusitis
     Dosage: 500 MILLIGRAM
     Route: 065
     Dates: start: 20231006, end: 20231011
  18. Spasfon [Concomitant]
     Indication: Abdominal pain
     Dosage: UNK
     Route: 065
     Dates: start: 20200724
  19. PREDNISONE [Concomitant]
     Active Substance: PREDNISONE
     Dosage: 5 MILLIGRAM, QD (IN THE MORNING)
     Route: 065
     Dates: start: 20210719
  20. SYMBICORT [Concomitant]
     Active Substance: BUDESONIDE\FORMOTEROL FUMARATE DIHYDRATE
     Dosage: 200 INTERNATIONAL UNIT, QD (1 PUFF PER DAY)
     Route: 065
     Dates: start: 20131119
  21. EUPANTOL [Concomitant]
     Active Substance: PANTOPRAZOLE SODIUM
     Dosage: 20 MILLIGRAM
     Route: 065
     Dates: start: 20160125, end: 20231011
  22. DOLIPRANE [Concomitant]
     Active Substance: ACETAMINOPHEN
     Dosage: 4 GRAM
     Route: 065
     Dates: start: 20140205
  23. CALTRATE [Concomitant]
     Active Substance: CALCIUM CARBONATE
     Indication: Osteoporosis
     Dosage: UNK
     Route: 065
     Dates: start: 20200316

REACTIONS (3)
  - Agranulocytosis [Recovered/Resolved]
  - Pyrexia [Recovered/Resolved]
  - Off label use [Unknown]

NARRATIVE: CASE EVENT DATE: 20230426
